FAERS Safety Report 11576178 (Version 1)
Quarter: 2015Q3

REPORT INFORMATION
  Report Type: Spontaneous
  Country: US (occurrence: None)
  Receive Date: 20150929
  Receipt Date: 20150929
  Transmission Date: 20151125
  Serious: Yes (Life-Threatening)
  Sender: FDA-Public Use
  Company Number: None

PATIENT
  Age: 51 Year
  Sex: Female
  Weight: 149.69 kg

DRUGS (6)
  1. METROPOL [Concomitant]
  2. PREDNISONE. [Concomitant]
     Active Substance: PREDNISONE
  3. LOW-DOSE ASPIRIN [Concomitant]
     Active Substance: ASPIRIN
  4. GRANUFLO [Suspect]
     Active Substance: ACETIC ACID\SODIUM ACETATE
     Indication: DIALYSIS
     Dosage: CATHETER AND / OR FISULA
     Dates: start: 20150504, end: 20150924
  5. HUMIRA INJECTIONS [Concomitant]
  6. PAXIL [Concomitant]
     Active Substance: PAROXETINE HYDROCHLORIDE

REACTIONS (2)
  - Malaise [None]
  - Cardiac failure congestive [None]

NARRATIVE: CASE EVENT DATE: 20150924
